FAERS Safety Report 24013071 (Version 2)
Quarter: 2024Q3

REPORT INFORMATION
  Report Type: Spontaneous
  Country: US (occurrence: US)
  Receive Date: 20240626
  Receipt Date: 20240716
  Transmission Date: 20241017
  Serious: No
  Sender: JOHNSON AND JOHNSON
  Company Number: US-JNJFOC-20240662427

PATIENT
  Age: 77 Year
  Sex: Female

DRUGS (1)
  1. WOMENS ROGAINE UNSCENTED [Suspect]
     Active Substance: MINOXIDIL
     Indication: Alopecia
     Dosage: 1/2 PUMP FOR 7 DAYS
     Route: 061
     Dates: start: 20240623, end: 202406

REACTIONS (4)
  - Wrong technique in product usage process [Unknown]
  - Product storage error [Unknown]
  - Incorrect dose administered [Unknown]
  - Poor quality product administered [Unknown]

NARRATIVE: CASE EVENT DATE: 20240623
